FAERS Safety Report 7688641 (Version 6)
Quarter: 2013Q3

REPORT INFORMATION
  Report Type: Spontaneous
  Country: US (occurrence: US)
  Receive Date: 20101201
  Receipt Date: 20130823
  Transmission Date: 20140515
  Serious: Yes (Hospitalization, Other)
  Sender: FDA-Public Use
  Company Number: US-ROCHE-722290

PATIENT
  Age: 19 Year
  Sex: Female
  Weight: 85.81 kg

DRUGS (3)
  1. ACCUTANE [Suspect]
     Indication: ACNE
     Route: 065
     Dates: start: 200109, end: 200109
  2. ACCUTANE [Suspect]
     Route: 065
     Dates: start: 20011121, end: 20011124
  3. KEFLEX [Concomitant]

REACTIONS (13)
  - Colitis ulcerative [Unknown]
  - Crohn^s disease [Unknown]
  - Iron deficiency anaemia [Unknown]
  - Gastrointestinal injury [Unknown]
  - Anal fissure [Unknown]
  - Intestinal obstruction [Unknown]
  - Crohn^s disease [Unknown]
  - Inflammatory bowel disease [Unknown]
  - Arthralgia [Unknown]
  - Arthritis [Unknown]
  - Arthropathy [Recovering/Resolving]
  - Mouth ulceration [Recovering/Resolving]
  - Haemorrhoids [Unknown]
